FAERS Safety Report 4555008-2 (Version None)
Quarter: 2004Q4

REPORT INFORMATION
  Report Type: 
  Country: None (occurrence: None)
  Receive Date: 20041217
  Receipt Date: 20040825
  Transmission Date: 20050328
  Serious: No
  Sender: FDA-Public Use
  Company Number: 2004-BP-07325BP(0)

PATIENT
  Age: 87 Year
  Sex: Male

DRUGS (5)
  1. SPIRIVA [Suspect]
     Indication: CHRONIC OBSTRUCTIVE AIRWAYS DISEASE
     Dosage: 18 MCG (18 MCG), IH
     Dates: start: 20040201
  2. DICYCLOMINE [Concomitant]
  3. HYTRIN [Concomitant]
  4. LASIX [Concomitant]
  5. DURAGESIC [Concomitant]

REACTIONS (1)
  - DYSPNOEA [None]
